FAERS Safety Report 7367362-7 (Version None)
Quarter: 2011Q1

REPORT INFORMATION
  Report Type: 
  Country: None (occurrence: None)
  Receive Date: 20110322
  Receipt Date: 20110317
  Transmission Date: 20110831
  Serious: No
  Sender: FDA-Public Use
  Company Number: US-TEVA-272131USA

PATIENT
  Sex: Female
  Weight: 54.48 kg

DRUGS (2)
  1. BIRTH CONTROL PILL [Concomitant]
     Indication: CONTRACEPTION
     Dates: start: 20110316
  2. PLAN B ONE-STEP [Suspect]
     Indication: POST COITAL CONTRACEPTION
     Route: 048
     Dates: start: 20110317, end: 20110317

REACTIONS (1)
  - VOMITING [None]
